FAERS Safety Report 6785705-X (Version None)
Quarter: 2010Q2

REPORT INFORMATION
  Report Type: 
  Country: None (occurrence: None)
  Receive Date: 20100623
  Receipt Date: 20100608
  Transmission Date: 20101027
  Serious: Yes (Other)
  Sender: FDA-Public Use
  Company Number: PHEH2010US03467

PATIENT
  Sex: Female

DRUGS (1)
  1. ZOMETA [Suspect]
     Dosage: UNK
     Dates: end: 20060601

REACTIONS (6)
  - BONE DENSITY DECREASED [None]
  - BONE DISORDER [None]
  - BONE LESION EXCISION [None]
  - EXOSTOSIS [None]
  - OSTEONECROSIS OF JAW [None]
  - WOUND DEHISCENCE [None]
